FAERS Safety Report 18305873 (Version 2)
Quarter: 2020Q4

REPORT INFORMATION
  Report Type: Report from Study
  Country: MX (occurrence: MX)
  Receive Date: 20200923
  Receipt Date: 20201001
  Transmission Date: 20210113
  Serious: Yes (Death)
  Sender: FDA-Public Use
  Company Number: NVSC2020MX259821

PATIENT
  Age: 78 Year
  Sex: Male
  Weight: 103 kg

DRUGS (4)
  1. ENTRESTO [Suspect]
     Active Substance: SACUBITRIL\VALSARTAN
     Dosage: 0.5 DF OF 100 MG, QD
     Route: 048
  2. ELIQUIS [Concomitant]
     Active Substance: APIXABAN
     Indication: CARDIAC FAILURE
     Dosage: 1 DF, Q12H (2.5 MG)
     Route: 048
     Dates: start: 201905
  3. ELIQUIS [Concomitant]
     Active Substance: APIXABAN
     Indication: CONGESTIVE CARDIOMYOPATHY
  4. ENTRESTO [Suspect]
     Active Substance: SACUBITRIL\VALSARTAN
     Indication: CONGESTIVE CARDIOMYOPATHY
     Dosage: 50 MG (1 DF), QD
     Route: 048
     Dates: start: 201905

REACTIONS (4)
  - Underdose [Unknown]
  - Sudden death [Fatal]
  - Wrong technique in product usage process [Unknown]
  - Product use issue [Unknown]

NARRATIVE: CASE EVENT DATE: 201905
